FAERS Safety Report 9512688 (Version 1)
Quarter: 2013Q3

REPORT INFORMATION
  Report Type: Spontaneous
  Country: IT (occurrence: IT)
  Receive Date: 20130910
  Receipt Date: 20130910
  Transmission Date: 20140515
  Serious: Yes (Hospitalization)
  Sender: FDA-Public Use
  Company Number: IT-TEVA-430141ISR

PATIENT
  Age: 45 Year
  Sex: Female

DRUGS (7)
  1. ZOLPIDEM TARTRATE [Suspect]
     Indication: SELF INJURIOUS BEHAVIOUR
     Dates: start: 20130821, end: 20130821
  2. EN [Suspect]
     Indication: SELF INJURIOUS BEHAVIOUR
     Dosage: 40 ML DAILY; SOLUTION FOR ORAL DROPS
     Route: 048
     Dates: start: 20130821, end: 20130821
  3. DEPALGOS [Suspect]
     Indication: SELF INJURIOUS BEHAVIOUR
     Route: 048
     Dates: start: 20130821, end: 20130821
  4. OXYCONTIN [Suspect]
     Indication: SELF INJURIOUS BEHAVIOUR
     Route: 048
     Dates: start: 20130821, end: 20130821
  5. TELMISARTAN [Concomitant]
     Indication: HYPERTENSION
  6. BISOPROLOLO EMIFUMARATO [Concomitant]
  7. OMEPRAZOLO [Concomitant]
     Indication: GASTRITIS PROPHYLAXIS

REACTIONS (2)
  - Coma [Recovered/Resolved]
  - Drug abuse [Recovered/Resolved]
